FAERS Safety Report 8112085-X (Version None)
Quarter: 2011Q4

REPORT INFORMATION
  Report Type: 
  Country: None (occurrence: None)
  Receive Date: 20111223
  Receipt Date: 20101029
  Transmission Date: 20120403
  Serious: Yes (Other)
  Sender: FDA-Public Use
  Company Number: PHHY2010US73194

PATIENT
  Age: 74 Year
  Sex: Female

DRUGS (9)
  1. ARIMIDEX [Suspect]
  2. CALCIUM CARBONATE [Concomitant]
  3. AROMASIN [Suspect]
  4. SYNTHROID [Concomitant]
  5. TOPROL-XL [Concomitant]
  6. MULTIVITAMINS (ASCORBIC ACID, ERGOCALCIFEROL, FOLIC ACID, NICOTINAMIDE [Concomitant]
  7. NORVASC [Concomitant]
  8. FEMARA [Suspect]
     Dosage: 2.5 MG
  9. BENICAR [Concomitant]

REACTIONS (9)
  - TENDONITIS [None]
  - BLOOD PRESSURE INCREASED [None]
  - BLOOD CHOLESTEROL INCREASED [None]
  - BONE PAIN [None]
  - ARTHRITIS [None]
  - PHOTOSENSITIVITY REACTION [None]
  - ARTHRALGIA [None]
  - PAIN IN EXTREMITY [None]
  - DIZZINESS [None]
